FAERS Safety Report 4524790-2 (Version None)
Quarter: 2004Q4

REPORT INFORMATION
  Report Type: 
  Country: None (occurrence: None)
  Receive Date: 20041208
  Receipt Date: 20041123
  Transmission Date: 20050328
  Serious: Yes (Other)
  Sender: FDA-Public Use
  Company Number: VIS10176.2004

PATIENT
  Age: 44 Year
  Sex: Male
  Weight: 104.3273 kg

DRUGS (8)
  1. VISICOL [Suspect]
     Indication: COLONOSCOPY
     Dosage: 48 G QD PO
     Route: 048
  2. MOBIC [Suspect]
     Indication: ANTIINFLAMMATORY THERAPY
  3. RAMIPRIL [Suspect]
     Indication: ANGIOTENSIN CONVERTING ENZYME
     Dosage: 10 MG QD PO
     Route: 048
  4. RAMIPRIL [Suspect]
     Indication: HYPERTENSION
     Dosage: 10 MG QD PO
     Route: 048
  5. PLAVIX [Concomitant]
  6. ZOCOR [Concomitant]
  7. PROBENECID [Concomitant]
  8. NORVASC [Concomitant]

REACTIONS (20)
  - ARTHRALGIA [None]
  - COLITIS [None]
  - DIZZINESS [None]
  - FAECAL OCCULT BLOOD POSITIVE [None]
  - HAEMATOCHEZIA [None]
  - HAEMATOCRIT DECREASED [None]
  - ILEAL STENOSIS [None]
  - INFLAMMATORY BOWEL DISEASE [None]
  - LABYRINTHITIS [None]
  - NEPHRITIS INTERSTITIAL [None]
  - NEPHROCALCINOSIS [None]
  - OESOPHAGITIS [None]
  - OSTEOARTHRITIS [None]
  - PREPYLORIC STENOSIS [None]
  - RENAL DISORDER [None]
  - RENAL TUBULAR DISORDER [None]
  - ROTATOR CUFF SYNDROME [None]
  - THROMBOSIS [None]
  - VERTIGO [None]
  - WEIGHT INCREASED [None]
